FAERS Safety Report 8180146-5 (Version None)
Quarter: 2012Q1

REPORT INFORMATION
  Report Type: 
  Country: None (occurrence: None)
  Receive Date: 20120217
  Receipt Date: 20120201
  Transmission Date: 20120608
  Serious: Yes (Hospitalization)
  Sender: FDA-Public Use
  Company Number: GAM-012-12-AU

PATIENT
  Age: 60 Year
  Sex: Female

DRUGS (1)
  1. OCTAGAM [Suspect]
     Indication: MYASTHENIA GRAVIS
     Dosage: 40 G - 1 X 1 / D INTRAVENOUS (NOT OTHERWISE SPECIFIED)
     Route: 042
     Dates: start: 20120130, end: 20120131

REACTIONS (5)
  - FACIAL PARESIS [None]
  - HYPOAESTHESIA [None]
  - BLINDNESS [None]
  - PALPITATIONS [None]
  - HEADACHE [None]
